FAERS Safety Report 19067474 (Version 1)
Quarter: 2021Q1

REPORT INFORMATION
  Report Type: Spontaneous
  Country: ES (occurrence: ES)
  Receive Date: 20210329
  Receipt Date: 20210329
  Transmission Date: 20210420
  Serious: Yes (Other)
  Sender: FDA-Public Use
  Company Number: ES-TEVA-2021-ES-1894510

PATIENT
  Age: 57 Year
  Sex: Female

DRUGS (3)
  1. RAMIPRIL (2497A) [Concomitant]
     Active Substance: RAMIPRIL
     Indication: HYPERTENSION
     Dosage: 5 MG
     Route: 048
  2. IBUPROFENO (1769A) [Suspect]
     Active Substance: IBUPROFEN
     Route: 048
     Dates: start: 20210216, end: 20210218
  3. OMEPRAZOL (2141A) [Concomitant]
     Active Substance: OMEPRAZOLE

REACTIONS (3)
  - Hypertensive crisis [Recovered/Resolved]
  - Chest pain [Recovered/Resolved]
  - Hypertension [Recovered/Resolved]

NARRATIVE: CASE EVENT DATE: 20210219
